FAERS Safety Report 5489257-6 (Version None)
Quarter: 2007Q4

REPORT INFORMATION
  Report Type: 
  Country: None (occurrence: None)
  Receive Date: 20071016
  Receipt Date: 20071005
  Transmission Date: 20080405
  Serious: Yes (Hospitalization)
  Sender: FDA-Public Use
  Company Number: 2007-03315

PATIENT
  Age: 71 Year
  Sex: Female
  Weight: 60.7 kg

DRUGS (37)
  1. VELCADE [Suspect]
     Indication: MULTIPLE MYELOMA
     Dosage: 1.00 MG/M2
     Dates: start: 20050722, end: 20050729
  2. VELCADE [Suspect]
     Indication: MULTIPLE MYELOMA
     Dosage: 1.00 MG/M2
     Dates: start: 20041009
  3. VELCADE [Suspect]
     Indication: MULTIPLE MYELOMA
     Dosage: 1.00 MG/M2
     Dates: start: 20041116
  4. DEXAMETHASONE [Suspect]
     Indication: MULTIPLE MYELOMA
     Dosage: 40.00 MG
     Dates: start: 20050722, end: 20050725
  5. DEXAMETHASONE [Suspect]
     Indication: MULTIPLE MYELOMA
     Dosage: 40.00 MG
     Dates: start: 20041012
  6. DEXAMETHASONE [Suspect]
     Indication: MULTIPLE MYELOMA
     Dosage: 40.00 MG
     Dates: start: 20041116
  7. THALIDOMIDE [Suspect]
     Indication: MULTIPLE MYELOMA
     Dosage: 200.00 MG
     Dates: start: 20050722, end: 20050725
  8. THALIDOMIDE [Suspect]
     Indication: MULTIPLE MYELOMA
     Dosage: 200.00 MG
     Dates: start: 20041012
  9. THALIDOMIDE [Suspect]
     Indication: MULTIPLE MYELOMA
     Dosage: 200.00 MG
     Dates: start: 20041116
  10. CISPLATIN [Suspect]
     Indication: MULTIPLE MYELOMA
     Dosage: 10.00 MG/M2, 7.50 MG/M2
     Dates: start: 20050722, end: 20050725
  11. CISPLATIN [Suspect]
     Indication: MULTIPLE MYELOMA
     Dosage: 10.00 MG/M2, 7.50 MG/M2
     Dates: start: 20041012
  12. CISPLATIN [Suspect]
     Indication: MULTIPLE MYELOMA
     Dosage: 10.00 MG/M2, 7.50 MG/M2
     Dates: start: 20041116
  13. DOXORUBICIN HCL [Suspect]
     Indication: MULTIPLE MYELOMA
     Dosage: 10.00 MG/M2, 7.50 MG/M2
     Dates: start: 20050722, end: 20050725
  14. DOXORUBICIN HCL [Suspect]
     Indication: MULTIPLE MYELOMA
     Dosage: 10.00 MG/M2, 7.50 MG/M2
     Dates: start: 20041012
  15. DOXORUBICIN HCL [Suspect]
     Indication: MULTIPLE MYELOMA
     Dosage: 10.00 MG/M2, 7.50 MG/M2
     Dates: start: 20041116
  16. CYCLOPHOSPHAMIDE [Suspect]
     Indication: MULTIPLE MYELOMA
     Dosage: 400.00 MG/M2, 300.00 MG/M2
     Dates: start: 20050722, end: 20050725
  17. CYCLOPHOSPHAMIDE [Suspect]
     Indication: MULTIPLE MYELOMA
     Dosage: 400.00 MG/M2, 300.00 MG/M2
     Dates: start: 20041012
  18. CYCLOPHOSPHAMIDE [Suspect]
     Indication: MULTIPLE MYELOMA
     Dosage: 400.00 MG/M2, 300.00 MG/M2
     Dates: start: 20041116
  19. ETOPOSIDE [Suspect]
     Indication: MULTIPLE MYELOMA
     Dosage: 40.00 MG/M2, 30.00 MG/M2
     Dates: start: 20050722, end: 20050725
  20. ETOPOSIDE [Suspect]
     Indication: MULTIPLE MYELOMA
     Dosage: 40.00 MG/M2, 30.00 MG/M2
     Dates: start: 20041012
  21. ETOPOSIDE [Suspect]
     Indication: MULTIPLE MYELOMA
     Dosage: 40.00 MG/M2, 30.00 MG/M2
     Dates: start: 20041116
  22. MELPHALAN(MELPHALAN) VIAL [Suspect]
     Indication: MULTIPLE MYELOMA
     Dosage: 140.00 MG/M2
     Dates: start: 20050104, end: 20050104
  23. MELPHALAN(MELPHALAN) VIAL [Suspect]
     Indication: MULTIPLE MYELOMA
     Dosage: 140.00 MG/M2
     Dates: start: 20050418, end: 20050418
  24. ARANESP [Concomitant]
  25. AREDIA [Concomitant]
  26. CLINDAMYCIN (CLINDAMYCIN) [Concomitant]
  27. MAXIPIME [Concomitant]
  28. FOLATE (FOLIC ACID) [Concomitant]
  29. LOVENOX [Concomitant]
  30. ZANTAC 150 [Concomitant]
  31. DIFLUCAN [Concomitant]
  32. ACYCLOVIR [Concomitant]
  33. CALCIUM (CALCIUM) [Concomitant]
  34. ATENOLOL [Concomitant]
  35. SYNTHROID [Concomitant]
  36. MULTIVITAMIN [Concomitant]
  37. ACIDOPHILUS (LACTOBACILLUS ACIDOPHILUS) [Concomitant]

REACTIONS (15)
  - ANAEMIA [None]
  - ATRIAL FIBRILLATION [None]
  - BACTERAEMIA [None]
  - CHOLELITHIASIS [None]
  - ENTERITIS [None]
  - ENTEROCOCCAL INFECTION [None]
  - HYPOKALAEMIA [None]
  - HYPOTENSION [None]
  - METABOLIC ACIDOSIS [None]
  - NEUTROPENIA [None]
  - PNEUMONIA [None]
  - RENAL FAILURE [None]
  - TACHYCARDIA [None]
  - THROMBOCYTOPENIA [None]
  - URINARY TRACT INFECTION [None]
